FAERS Safety Report 7974859-5 (Version None)
Quarter: 2011Q4

REPORT INFORMATION
  Report Type: 
  Country: None (occurrence: None)
  Receive Date: 20111213
  Receipt Date: 20111202
  Transmission Date: 20120403
  Serious: Yes (Disabling)
  Sender: FDA-Public Use
  Company Number: PT-MERCK-1112PRT00004

PATIENT
  Sex: Female

DRUGS (11)
  1. COSOPT [Suspect]
     Indication: INTRAOCULAR PRESSURE INCREASED
     Route: 047
  2. NIFEDIPINE [Suspect]
     Indication: CORONARY ARTERY DISEASE
     Route: 048
     Dates: start: 20111116, end: 20111116
  3. INFLUENZA VIRUS A WHOLE VIRION VACCINE INACTIVATED (H1N1) [Concomitant]
     Indication: IMMUNISATION
     Route: 030
     Dates: start: 20111116, end: 20111116
  4. CIPROFIBRATE [Concomitant]
     Indication: HYPERTRIGLYCERIDAEMIA
     Route: 048
  5. HYDROCHLOROTHIAZIDE [Concomitant]
     Indication: HYPERTENSION
     Route: 065
  6. ALLOPURINOL [Concomitant]
     Indication: HYPERURICAEMIA
     Route: 048
  7. PRINIVIL [Concomitant]
     Indication: HYPERTENSION
     Route: 048
  8. BETAHISTINE [Concomitant]
     Indication: MENIERE'S DISEASE
     Route: 048
  9. AMILORIDE HYDROCHLORIDE [Concomitant]
     Indication: HYPERTENSION
     Route: 065
  10. LEVOTHYROXINE SODIUM [Concomitant]
     Indication: HYPOTHYROIDISM
     Route: 048
  11. TRIMETAZIDINE HYDROCHLORIDE [Concomitant]
     Indication: ANGINA PECTORIS
     Route: 048

REACTIONS (6)
  - TREMOR [None]
  - VISUAL IMPAIRMENT [None]
  - TACHYCARDIA [None]
  - LOSS OF CONSCIOUSNESS [None]
  - DRUG INTERACTION [None]
  - HEADACHE [None]
